FAERS Safety Report 9656515 (Version 4)
Quarter: 2015Q3

REPORT INFORMATION
  Report Type: Spontaneous
  Country: US (occurrence: US)
  Receive Date: 20131030
  Receipt Date: 20150902
  Transmission Date: 20151125
  Serious: Yes (Hospitalization, Other)
  Sender: FDA-Public Use
  Company Number: US-BAYER-2013-130773

PATIENT
  Age: 22 Year
  Sex: Female
  Weight: 41.27 kg

DRUGS (2)
  1. MIRENA [Suspect]
     Active Substance: LEVONORGESTREL
     Indication: CONTRACEPTION
     Dosage: 20 MCG/24HR, CONT
     Route: 015
     Dates: start: 20110105, end: 2013
  2. CIPROFLOXACIN. [Concomitant]
     Active Substance: CIPROFLOXACIN
     Indication: URINARY TRACT INFECTION

REACTIONS (12)
  - Ovarian cyst [None]
  - Abdominal pain lower [None]
  - Uterine pain [None]
  - Uterine perforation [None]
  - Pain [None]
  - Vaginal haemorrhage [None]
  - Emotional distress [None]
  - Psychological trauma [None]
  - Device dislocation [None]
  - Infertility female [None]
  - Pelvic inflammatory disease [None]
  - Injury [None]
